FAERS Safety Report 8453402 (Version 2)
Quarter: 2013Q2

REPORT INFORMATION
  Report Type: Spontaneous
  Country: US (occurrence: None)
  Receive Date: 20120216
  Receipt Date: 20120810
  Transmission Date: 20140414
  Serious: Yes (Other)
  Sender: FDA-Public Use
  Company Number: 2011SCPR003443

PATIENT
  Age: 69 Year
  Sex: Female

DRUGS (3)
  1. PROPAFENONE HYDROCHLORIDE [Suspect]
     Indication: HEART RATE IRREGULAR
     Route: 048
     Dates: start: 2010
  2. ATENOLOL [Concomitant]
  3. LEVOXYL (LEVOTHYROXINE SODIUM) [Concomitant]

REACTIONS (1)
  - HEART RATE IRREGULAR [None]
